FAERS Safety Report 13215014 (Version 1)
Quarter: 2017Q1

REPORT INFORMATION
  Report Type: Spontaneous
  Country: US (occurrence: US)
  Receive Date: 20170209
  Receipt Date: 20170209
  Transmission Date: 20170428
  Serious: No
  Sender: FDA-Public Use
  Company Number: US-ALLERGAN-1681417US

PATIENT
  Age: 70 Year
  Sex: Female

DRUGS (8)
  1. BOTOX COSMETIC [Suspect]
     Active Substance: ONABOTULINUMTOXINA
     Indication: SKIN WRINKLING
     Dosage: 50 UNITS, SINGLE
     Route: 030
     Dates: start: 20161209, end: 20161209
  2. ALENDRONATE [Concomitant]
     Active Substance: ALENDRONATE SODIUM
  3. VALIUM [Concomitant]
     Active Substance: DIAZEPAM
     Dosage: UNK UNK, PRN
     Route: 048
  4. BOTOX COSMETIC [Suspect]
     Active Substance: ONABOTULINUMTOXINA
     Indication: SKIN WRINKLING
  5. MIRTAZAPINE. [Concomitant]
     Active Substance: MIRTAZAPINE
     Indication: DEPRESSION
     Dosage: 7.5 UNK, UNK
     Route: 048
  6. BOTOX COSMETIC [Suspect]
     Active Substance: ONABOTULINUMTOXINA
     Indication: SKIN WRINKLING
  7. FLUPHENAZINE [Concomitant]
     Active Substance: FLUPHENAZINE
     Indication: DEPRESSION
     Dosage: 1 MG, UNK
     Route: 048
  8. ZOLPIDEM [Concomitant]
     Active Substance: ZOLPIDEM\ZOLPIDEM TARTRATE
     Dosage: 5 MG, UNK
     Route: 048

REACTIONS (1)
  - Arthritis [Not Recovered/Not Resolved]

NARRATIVE: CASE EVENT DATE: 20161210
